FAERS Safety Report 7148992-4 (Version None)
Quarter: 2010Q4

REPORT INFORMATION
  Report Type: 
  Country: None (occurrence: None)
  Receive Date: 20101124
  Receipt Date: 20101116
  Transmission Date: 20110411
  Serious: Yes (Death)
  Sender: FDA-Public Use
  Company Number: KV200801609

PATIENT
  Age: 59 Year
  Sex: Female
  Weight: 56.7 kg

DRUGS (23)
  1. MORPHINE SULFATE [Suspect]
     Indication: PAIN
     Dosage: 15 MG Q6-8 HRS PRN, ORAL
     Route: 048
     Dates: start: 20080304, end: 20080606
  2. TRAMADOL [Concomitant]
  3. METHADONE [Concomitant]
  4. DOXEPIN HCL [Concomitant]
  5. ATROPINE [Concomitant]
  6. DIPHENHYDRAMINE [Concomitant]
  7. CLONAZEPAM [Concomitant]
  8. GABAPENTIN [Concomitant]
  9. PROMETHAZINE [Concomitant]
  10. TRICYCLIC ANTIDEPRESSANTS [Concomitant]
  11. PROTONIX [Concomitant]
  12. ZOLOFT [Concomitant]
  13. LORTAB [Concomitant]
  14. PRILOSEC (OMEPRAZOLE) [Concomitant]
  15. FERROUS SULFATE [Concomitant]
  16. DICYCLOMINE (CICYCLOVERINE) [Concomitant]
  17. CYCLOBENZAPRINE [Concomitant]
  18. LORATADINE [Concomitant]
  19. METHYLPREDNISOLONE [Concomitant]
  20. ATEROL (SULODEXIDE) [Concomitant]
  21. OXYCODONE [Concomitant]
  22. PROZAC [Concomitant]
  23. LYRICA [Concomitant]

REACTIONS (10)
  - ACCIDENTAL OVERDOSE [None]
  - CARDIAC ARREST [None]
  - CRYING [None]
  - DRUG TOXICITY [None]
  - EMPHYSEMA [None]
  - FALL [None]
  - HAEMORRHAGE [None]
  - MELANOCYTIC NAEVUS [None]
  - NASAL CONGESTION [None]
  - NEPHROSCLEROSIS [None]
